FAERS Safety Report 5268969-3 (Version None)
Quarter: 2007Q1

REPORT INFORMATION
  Report Type: 
  Country: None (occurrence: None)
  Receive Date: 20061214
  Receipt Date: 20060914
  Transmission Date: 20070707
  Serious: Yes (Hospitalization)
  Sender: FDA-Public Use
  Company Number: 2006112092

PATIENT
  Age: 73 Year
  Weight: 92.806 kg

DRUGS (4)
  1. ALPRAZOLAM [Suspect]
     Indication: ANXIETY
     Dosage: 2.5 MG (AS REQUIRED), ORAL
     Route: 048
  2. LETROZOLE [Suspect]
     Indication: BREAST CANCER METASTATIC
     Dosage: 2.5 MG (1 IN 1 D), ORAL
     Route: 048
     Dates: start: 20060815
  3. PLACEBO (PLACEBO) [Suspect]
     Indication: BREAST CANCER METASTATIC
     Dosage: 1500 MG (1 IN 1 D)
     Dates: start: 20060815, end: 20060828
  4. PERCOCET [Concomitant]

REACTIONS (4)
  - ABDOMINAL PAIN UPPER [None]
  - ASTHENIA [None]
  - CONFUSIONAL STATE [None]
  - LIVER FUNCTION TEST ABNORMAL [None]
